FAERS Safety Report 12539247 (Version 1)
Quarter: 2016Q3

REPORT INFORMATION
  Report Type: Spontaneous
  Country: US (occurrence: None)
  Receive Date: 20160707
  Receipt Date: 20160707
  Transmission Date: 20161109
  Serious: Yes (Other)
  Sender: FDA-Public Use
  Company Number: None

PATIENT
  Age: 63 Year
  Sex: Female
  Weight: 58.97 kg

DRUGS (6)
  1. SEREQUIL [Concomitant]
  2. CHEWY VITAMINS [Concomitant]
  3. RESTASIS [Suspect]
     Active Substance: CYCLOSPORINE
  4. PRISTIQ EXTENDED-RELEASE [Concomitant]
     Active Substance: DESVENLAFAXINE SUCCINATE
  5. ADDERALL [Concomitant]
     Active Substance: AMPHETAMINE ASPARTATE\AMPHETAMINE SULFATE\DEXTROAMPHETAMINE SACCHARATE\DEXTROAMPHETAMINE SULFATE
  6. LEXEPRO [Concomitant]

REACTIONS (1)
  - Migraine [None]

NARRATIVE: CASE EVENT DATE: 20160507
